FAERS Safety Report 26042349 (Version 1)
Quarter: 2025Q4

REPORT INFORMATION
  Report Type: Spontaneous
  Country: US (occurrence: US)
  Receive Date: 20251113
  Receipt Date: 20251113
  Transmission Date: 20260118
  Serious: Yes (Other)
  Sender: BRISTOL-MYERS SQUIBB COMPANY
  Company Number: US-BRISTOL-MYERS SQUIBB COMPANY-2025-153263

PATIENT
  Age: 78 Year
  Sex: Female

DRUGS (1)
  1. LENALIDOMIDE [Suspect]
     Active Substance: LENALIDOMIDE
     Indication: Hypothyroidism
     Dosage: TAKE 1 WHOLE?CAPSULE BY?MOUTH WITH?WATER EVERY?MORNING FOR?28 DAYS. DO?NOT BREAK,?CHEW, OR?OPEN
     Route: 048

REACTIONS (1)
  - Hypoacusis [Recovered/Resolved]
